FAERS Safety Report 9684152 (Version 1)
Quarter: 2013Q4

REPORT INFORMATION
  Report Type: Spontaneous
  Country: US (occurrence: None)
  Receive Date: 20131111
  Receipt Date: 20131111
  Transmission Date: 20140711
  Serious: Yes (Disabling, Other)
  Sender: FDA-Public Use
  Company Number: None

PATIENT
  Age: 43 Year
  Sex: Female
  Weight: 50.8 kg

DRUGS (2)
  1. AUGMENTIN [Suspect]
     Indication: SINUSITIS
     Dosage: 7 DAYS, 1 PILL, TWICE DAILY, TAKEN BY MOUTH
     Route: 048
  2. AUGMENTIN [Suspect]
     Indication: BRONCHITIS
     Dosage: 7 DAYS, 1 PILL, TWICE DAILY, TAKEN BY MOUTH
     Route: 048

REACTIONS (2)
  - Deafness unilateral [None]
  - Ear pain [None]
